FAERS Safety Report 17598800 (Version 1)
Quarter: 2020Q1

REPORT INFORMATION
  Report Type: Spontaneous
  Country: FR (occurrence: FR)
  Receive Date: 20200330
  Receipt Date: 20200330
  Transmission Date: 20200409
  Serious: Yes (Other)
  Sender: FDA-Public Use
  Company Number: FR-MYLANLABS-2020M1031752

PATIENT
  Age: 5 Year
  Sex: Female
  Weight: 17 kg

DRUGS (3)
  1. NALBUPHINE MYLAN 20 MG/ 2ML, SOLUTION INJECTABLE (IV-SC-IM) [Suspect]
     Active Substance: NALBUPHINE
     Indication: MYALGIA
     Dosage: 8 MILLIGRAM, PRN
     Route: 042
     Dates: start: 20200213, end: 20200214
  2. SOLU-MEDROL [Concomitant]
     Active Substance: METHYLPREDNISOLONE SODIUM SUCCINATE
     Dosage: UNK
  3. IMIPENEM CILASTATINE MYLAN 500 MG/500 MG [Suspect]
     Active Substance: CILASTATIN SODIUM\IMIPENEM
     Indication: KLEBSIELLA BACTERAEMIA
     Dosage: 2400 MILLIGRAM, QD
     Route: 041

REACTIONS (4)
  - Abdominal pain [Recovered/Resolved]
  - Product prescribing error [Recovered/Resolved]
  - Accidental overdose [Recovered/Resolved]
  - Incorrect dose administered [Recovered/Resolved]

NARRATIVE: CASE EVENT DATE: 20200212
